FAERS Safety Report 18224598 (Version 2)
Quarter: 2020Q3

REPORT INFORMATION
  Report Type: Report from Study
  Country: US (occurrence: US)
  Receive Date: 20200902
  Receipt Date: 20200907
  Transmission Date: 20201103
  Serious: No
  Sender: FDA-Public Use
  Company Number: NVSC2020US234786

PATIENT
  Sex: Male
  Weight: 98.88 kg

DRUGS (1)
  1. XIIDRA [Suspect]
     Active Substance: LIFITEGRAST
     Indication: DRY EYE
     Dosage: UNK UNK, BID
     Route: 047

REACTIONS (6)
  - Eye irritation [Recovered/Resolved]
  - Allergic reaction to excipient [Recovered/Resolved]
  - Vision blurred [Recovered/Resolved]
  - Swollen tongue [Recovered/Resolved]
  - Ocular hyperaemia [Recovered/Resolved]
  - Dysgeusia [Recovered/Resolved]
